FAERS Safety Report 7170088-6 (Version None)
Quarter: 2010Q4

REPORT INFORMATION
  Report Type: 
  Country: None (occurrence: None)
  Receive Date: 20101217
  Receipt Date: 20101206
  Transmission Date: 20110411
  Serious: Yes (Other)
  Sender: FDA-Public Use
  Company Number: BR-ROCHE-639571

PATIENT
  Age: 30 Year
  Sex: Female

DRUGS (5)
  1. AVASTIN [Suspect]
     Dosage: ON DAY 1
     Route: 042
  2. IRINOTECAN [Suspect]
     Dosage: 90 MINUTE, INFUSION, ON DAY 1
     Route: 042
  3. FOLINIC ACID [Suspect]
     Dosage: OVER 2 HOURS ON DAY 1
     Route: 042
  4. FLUOROURACIL [Suspect]
     Dosage: INTRAVENOUS BOLUS, ON DAY 1
     Route: 042
  5. FLUOROURACIL [Suspect]
     Dosage: 46 HOUR CONTINUOUS INFUSION, ON DAY 1
     Route: 042

REACTIONS (3)
  - DYSPHAGIA [None]
  - EROSIVE OESOPHAGITIS [None]
  - ODYNOPHAGIA [None]
